FAERS Safety Report 7895829-1 (Version None)
Quarter: 2011Q4

REPORT INFORMATION
  Report Type: 
  Country: None (occurrence: None)
  Receive Date: 20111106
  Receipt Date: 20110831
  Transmission Date: 20120403
  Serious: No
  Sender: FDA-Public Use
  Company Number: US-AMGEN-USASP2011044778

PATIENT
  Age: 55 Year
  Sex: Female

DRUGS (2)
  1. TOPROL-XL [Concomitant]
     Indication: HEART RATE INCREASED
     Dosage: UNK
  2. ENBREL [Suspect]
     Indication: RHEUMATOID ARTHRITIS
     Dosage: 50 MG, QWK
     Dates: start: 20090916

REACTIONS (1)
  - HEART RATE INCREASED [None]
